FAERS Safety Report 15278416 (Version 1)
Quarter: 2018Q3

REPORT INFORMATION
  Report Type: Spontaneous
  Country: US (occurrence: US)
  Receive Date: 20180814
  Receipt Date: 20180814
  Transmission Date: 20181010
  Serious: Yes (Life-Threatening)
  Sender: FDA-Public Use
  Company Number: PHEH2018US033372

PATIENT
  Sex: Female

DRUGS (1)
  1. TRAVATAN Z [Suspect]
     Active Substance: TRAVOPROST
     Indication: PRODUCT USED FOR UNKNOWN INDICATION
     Dosage: 1 GTT, QHS
     Route: 047

REACTIONS (6)
  - Skin irritation [Unknown]
  - Feeling abnormal [Unknown]
  - Skin exfoliation [Unknown]
  - Swollen tongue [Unknown]
  - Skin fissures [Unknown]
  - Skin discolouration [Unknown]
